FAERS Safety Report 5706961-2 (Version None)
Quarter: 2008Q2

REPORT INFORMATION
  Report Type: 
  Country: None (occurrence: None)
  Receive Date: 20080416
  Receipt Date: 20080414
  Transmission Date: 20081010
  Serious: Yes (Life-Threatening, Hospitalization)
  Sender: FDA-Public Use
  Company Number: FR-BRISTOL-MYERS SQUIBB COMPANY-14148969

PATIENT
  Age: 73 Year
  Sex: Female

DRUGS (4)
  1. PARAPLATIN [Suspect]
     Indication: OVARIAN CANCER METASTATIC
     Route: 042
     Dates: start: 20071114
  2. SOLU-MEDROL [Suspect]
     Indication: PREMEDICATION
     Route: 042
     Dates: start: 20071114
  3. PLITICAN [Suspect]
     Indication: PREMEDICATION
     Route: 042
     Dates: start: 20071114
  4. ZOPHREN [Suspect]
     Indication: PREMEDICATION
     Route: 042
     Dates: start: 20071114

REACTIONS (2)
  - CARDIO-RESPIRATORY ARREST [None]
  - CARDIOGENIC SHOCK [None]
